FAERS Safety Report 4300213-3 (Version None)
Quarter: 2004Q1

REPORT INFORMATION
  Report Type: 
  Country: None (occurrence: None)
  Receive Date: 20040218
  Receipt Date: 20040213
  Transmission Date: 20041129
  Serious: Yes (Hospitalization)
  Sender: FDA-Public Use
  Company Number: STA-AE-04-MTX-061

PATIENT
  Age: 43 Year
  Sex: Female

DRUGS (3)
  1. METHOTREXATE [Suspect]
     Dosage: 20 MG 1X PER 1 WK
     Dates: start: 20030301, end: 20031001
  2. ENBREL [Suspect]
     Indication: DERMATOMYOSITIS
     Dosage: 25 MG 2X PER 1 WK, SC
     Route: 058
     Dates: start: 20030301, end: 20031001
  3. PREDNISONE [Concomitant]

REACTIONS (1)
  - CELLULITIS [None]
